FAERS Safety Report 7770181-0 (Version None)
Quarter: 2011Q3

REPORT INFORMATION
  Report Type: 
  Country: None (occurrence: None)
  Receive Date: 20110922
  Receipt Date: 20110216
  Transmission Date: 20111222
  Serious: Yes (Hospitalization)
  Sender: FDA-Public Use
  Company Number: US-ASTRAZENECA-2011SE08978

PATIENT
  Age: 61 Year
  Sex: Male

DRUGS (7)
  1. SEROQUEL XR [Suspect]
     Route: 048
     Dates: start: 20090101
  2. EFFEXOR [Concomitant]
  3. SEROQUEL XR [Suspect]
     Indication: AFFECTIVE DISORDER
     Route: 048
     Dates: start: 20090101
  4. STOMACH ULCER MED FOR UNKNOWN NAME [Concomitant]
  5. SEROQUEL XR [Suspect]
     Indication: SLEEP DISORDER
     Route: 048
     Dates: start: 20090101
  6. REMERON [Concomitant]
  7. SEROQUEL XR [Suspect]
     Route: 048
     Dates: start: 20090101

REACTIONS (1)
  - DEPRESSION [None]
